FAERS Safety Report 20504834 (Version 7)
Quarter: 2023Q4

REPORT INFORMATION
  Report Type: Spontaneous
  Country: GB (occurrence: GB)
  Receive Date: 20220223
  Receipt Date: 20231011
  Transmission Date: 20240109
  Serious: Yes (Death, Life-Threatening, Hospitalization, Other)
  Sender: FDA-Public Use
  Company Number: GB-ROCHE-2981998

PATIENT
  Age: 70 Year
  Sex: Male
  Weight: 80.6 kg

DRUGS (16)
  1. CARBOPLATIN [Suspect]
     Active Substance: CARBOPLATIN
     Indication: Small cell lung cancer extensive stage
     Dosage: 400 MILLIGRAM
     Route: 065
     Dates: start: 20211130
  2. ATEZOLIZUMAB [Suspect]
     Active Substance: ATEZOLIZUMAB
     Indication: Small cell lung cancer extensive stage
     Dosage: 1200 MILLIGRAM
     Route: 041
     Dates: start: 20211130
  3. ETOPOSIDE [Suspect]
     Active Substance: ETOPOSIDE
     Indication: Small cell lung cancer extensive stage
     Dosage: 200 MILLIGRAM, BID
     Route: 042
     Dates: start: 20211130, end: 20211202
  4. ETOPOSIDE [Suspect]
     Active Substance: ETOPOSIDE
     Dosage: 100 MILLIGRAM
     Route: 048
     Dates: start: 20211201
  5. AMOXICILLIN [Concomitant]
     Active Substance: AMOXICILLIN
     Indication: Product used for unknown indication
     Dosage: UNKNOWN
     Route: 065
  6. DEXAMETHASONE [Concomitant]
     Active Substance: DEXAMETHASONE
     Indication: Prophylaxis
     Dosage: UNKNOWN
     Route: 065
     Dates: start: 20220108, end: 20220110
  7. DEXAMETHASONE [Concomitant]
     Active Substance: DEXAMETHASONE
     Dosage: UNKNOWN
     Route: 065
     Dates: start: 20211130, end: 20211202
  8. DEXAMETHASONE [Concomitant]
     Active Substance: DEXAMETHASONE
     Dosage: UNKNOWN
     Route: 065
     Dates: start: 20220108
  9. DEXAMETHASONE [Concomitant]
     Active Substance: DEXAMETHASONE
     Dosage: UNKNOWN
     Route: 065
     Dates: start: 20220128, end: 20220131
  10. METOCLOPRAMIDE [Concomitant]
     Active Substance: METOCLOPRAMIDE
     Indication: Product used for unknown indication
     Dosage: ONCE AS NECESSARY
     Route: 065
     Dates: start: 20211130
  11. METOCLOPRAMIDE [Concomitant]
     Active Substance: METOCLOPRAMIDE
     Dosage: ONCE AS NECESSARY
     Route: 065
     Dates: start: 20220108
  12. METOCLOPRAMIDE [Concomitant]
     Active Substance: METOCLOPRAMIDE
     Dosage: ONCE AS NECESSARY
     Route: 065
     Dates: start: 20220128
  13. ONDANSETRON [Concomitant]
     Active Substance: ONDANSETRON
     Indication: Product used for unknown indication
     Dosage: UNKNOWN
     Route: 065
     Dates: start: 20211130, end: 20211202
  14. ONDANSETRON [Concomitant]
     Active Substance: ONDANSETRON
     Dosage: UNKNOWN
     Route: 065
     Dates: start: 20220108, end: 20220110
  15. ONDANSETRON [Concomitant]
     Active Substance: ONDANSETRON
     Dosage: UNKNOWN
     Route: 065
     Dates: start: 20220128, end: 20220131
  16. FORTISIP COMPACT PROTEIN [Concomitant]
     Indication: Product used for unknown indication
     Dosage: UNKNOWN
     Route: 065

REACTIONS (5)
  - Death [Fatal]
  - Streptococcus test positive [Unknown]
  - Hypomagnesaemia [Recovered/Resolved]
  - Neutropenic sepsis [Recovered/Resolved]
  - Hypokalaemia [Recovering/Resolving]

NARRATIVE: CASE EVENT DATE: 20211207
